FAERS Safety Report 14281169 (Version 2)
Quarter: 2023Q4

REPORT INFORMATION
  Report Type: Spontaneous
  Country: FR (occurrence: FR)
  Receive Date: 20171213
  Receipt Date: 20231004
  Transmission Date: 20240109
  Serious: Yes (Hospitalization)
  Sender: FDA-Public Use
  Company Number: FR-AUROBINDO-AUR-APL-2017-45055

PATIENT
  Age: 73 Year
  Sex: Female

DRUGS (6)
  1. BISOPROLOL [Suspect]
     Active Substance: BISOPROLOL\BISOPROLOL FUMARATE
     Indication: Hypertension
     Dosage: 5 MILLIGRAM, ONCE A DAY
     Route: 048
     Dates: start: 20170601
  2. BISOPROLOL FUMARATE\HYDROCHLOROTHIAZIDE [Suspect]
     Active Substance: BISOPROLOL FUMARATE\HYDROCHLOROTHIAZIDE
     Indication: Hypertension
     Dosage: 5 MG/6.25 MGFREQUENCY TEXT: IN THE MORNING
     Route: 048
     Dates: start: 20170504
  3. BISOPROLOL FUMARATE\HYDROCHLOROTHIAZIDE [Suspect]
     Active Substance: BISOPROLOL FUMARATE\HYDROCHLOROTHIAZIDE
     Dosage: 0 MG/6.25 MGFREQUENCY TEXT: IN THE MORNING
     Route: 048
     Dates: start: 20170513
  4. BISOPROLOL FUMARATE\HYDROCHLOROTHIAZIDE [Suspect]
     Active Substance: BISOPROLOL FUMARATE\HYDROCHLOROTHIAZIDE
     Dosage: 5 MG/6.25 MGFREQUENCY TEXT: IN THE MORNING
     Route: 048
     Dates: start: 20170601
  5. ALDACTONE [Suspect]
     Active Substance: SPIRONOLACTONE
     Indication: Hypertension
     Dosage: 1 DOSAGE FORM, ONCE A DAY
     Route: 048
     Dates: start: 20170601, end: 20170613
  6. LERCANIDIPINE [Concomitant]
     Active Substance: LERCANIDIPINE
     Indication: Product used for unknown indication
     Dosage: UNK
     Route: 065
     Dates: start: 20170513, end: 20170514

REACTIONS (3)
  - Hypotension [Recovered/Resolved]
  - Wrist fracture [Recovered/Resolved]
  - Fall [Recovered/Resolved]

NARRATIVE: CASE EVENT DATE: 20170613
